FAERS Safety Report 18751834 (Version 5)
Quarter: 2021Q4

REPORT INFORMATION
  Report Type: Spontaneous
  Country: IN (occurrence: IN)
  Receive Date: 20210118
  Receipt Date: 20211216
  Transmission Date: 20220303
  Serious: Yes (Life-Threatening, Hospitalization, Other)
  Sender: FDA-Public Use
  Company Number: IN-SA-SAC20210115000554

PATIENT
  Age: 48 Year
  Sex: Female

DRUGS (13)
  1. THYMOGLOBULINE [Suspect]
     Active Substance: LAPINE T-LYMPHOCYTE IMMUNE GLOBULIN
     Dosage: 50 MG
  2. LEVOFLOXACIN [Suspect]
     Active Substance: LEVOFLOXACIN
  3. PIPERACILLIN SODIUM\TAZOBACTAM SODIUM [Suspect]
     Active Substance: PIPERACILLIN SODIUM\TAZOBACTAM SODIUM
  4. PIPERACILLIN [Suspect]
     Active Substance: PIPERACILLIN
  5. MEROPENEM [Suspect]
     Active Substance: MEROPENEM
  6. FUROSEMIDE\SPIRONOLACTONE [Suspect]
     Active Substance: FUROSEMIDE\SPIRONOLACTONE
  7. ACETAMINOPHEN [Concomitant]
     Active Substance: ACETAMINOPHEN
     Indication: Pyrexia
     Dosage: 500 MG
  8. DIPHENHYDRAMINE [Concomitant]
     Active Substance: DIPHENHYDRAMINE
     Dosage: 500 MG
  9. METHYLPREDNISOLONE [Concomitant]
     Active Substance: METHYLPREDNISOLONE
     Dosage: 500 MG
  10. MYCOPHENOLATE MOFETIL [Concomitant]
     Active Substance: MYCOPHENOLATE MOFETIL
  11. TACROLIMUS [Concomitant]
     Active Substance: TACROLIMUS
     Dosage: 81 MG
  12. NORADRENALINE MYX [Concomitant]
  13. TEICOPLANIN [Concomitant]
     Active Substance: TEICOPLANIN

REACTIONS (12)
  - Haemorrhage [Unknown]
  - Dyspnoea [Unknown]
  - Crepitations [Unknown]
  - Oxygen saturation decreased [Unknown]
  - Hypotension [Unknown]
  - Lactic acidosis [Unknown]
  - Pneumonitis [Unknown]
  - Infection [Unknown]
  - Anaphylactic reaction [Unknown]
  - Sepsis [Unknown]
  - Cytokine storm [Unknown]
  - Serum sickness [Unknown]
